FAERS Safety Report 5017013-1 (Version None)
Quarter: 2006Q2

REPORT INFORMATION
  Report Type: 
  Country: None (occurrence: None)
  Receive Date: 20060526
  Receipt Date: 20060516
  Transmission Date: 20061013
  Serious: Yes (Disabling)
  Sender: FDA-Public Use
  Company Number: 225203

PATIENT
  Age: 63 Year
  Sex: Female

DRUGS (6)
  1. AVASTIN [Suspect]
     Indication: NEOPLASM MALIGNANT
     Dosage: 5 MG/KG, Q3W, INTRAVENOUS
     Route: 042
     Dates: start: 20050901
  2. CARBOPLATIN [Concomitant]
  3. TAXOTERE [Concomitant]
  4. TARCEVA [Concomitant]
  5. NEULASTA [Concomitant]
  6. DIURETIC NOS (DIURETIC NOS) [Concomitant]

REACTIONS (5)
  - ARTHRALGIA [None]
  - AUTOIMMUNE DISORDER [None]
  - MOVEMENT DISORDER [None]
  - RHEUMATOID FACTOR INCREASED [None]
  - SLEEP DISORDER [None]
